FAERS Safety Report 6617012-X (Version None)
Quarter: 2010Q1

REPORT INFORMATION
  Report Type: 
  Country: None (occurrence: None)
  Receive Date: 20100302
  Receipt Date: 20100224
  Transmission Date: 20100710
  Serious: Yes (Death)
  Sender: FDA-Public Use
  Company Number: 2010JP001112

PATIENT
  Age: 16 Year
  Sex: Female

DRUGS (7)
  1. PROGRAF [Suspect]
     Indication: BONE MARROW TRANSPLANT
     Dosage: UNKNOWN
  2. PREDNISOLONE [Concomitant]
  3. PREDNISOLONE [Concomitant]
  4. PREDNISOLONE [Concomitant]
  5. METHOTREXATE [Concomitant]
  6. IMMUNE GLOBULIN (HUMAN) [Concomitant]
  7. ETOPOSIDE [Concomitant]

REACTIONS (4)
  - CYTOMEGALOVIRUS INFECTION [None]
  - HEPATIC ENCEPHALOPATHY [None]
  - HEPATIC FAILURE [None]
  - HISTIOCYTOSIS HAEMATOPHAGIC [None]
